FAERS Safety Report 11068734 (Version 1)
Quarter: 2015Q2

REPORT INFORMATION
  Report Type: Spontaneous
  Country: US (occurrence: None)
  Receive Date: 20150424
  Receipt Date: 20150424
  Transmission Date: 20150821
  Serious: No
  Sender: FDA-Public Use
  Company Number: None

PATIENT
  Age: 34 Year
  Sex: Female
  Weight: 99.79 kg

DRUGS (6)
  1. VITAMIN D [Concomitant]
     Active Substance: CHOLECALCIFEROL
  2. B VITAMINS (METHYL FOLATE AND METHYL CABALAMIN) [Concomitant]
  3. CLOBETASOL PROPIONATE. [Suspect]
     Active Substance: CLOBETASOL PROPIONATE
     Indication: SKIN ULCER
     Dosage: APPLY TO AFFECTED AREA, TWICE DAILY, APPLIED TO A SURFACE, USUALLY THE SKIN
     Dates: start: 20150416, end: 20150421
  4. ALBUTEROL. [Concomitant]
     Active Substance: ALBUTEROL
  5. VYVANSE [Concomitant]
     Active Substance: LISDEXAMFETAMINE DIMESYLATE
  6. LORAZEPAM. [Concomitant]
     Active Substance: LORAZEPAM

REACTIONS (7)
  - Skin infection [None]
  - Blister [None]
  - Drug prescribing error [None]
  - Condition aggravated [None]
  - Contraindicated drug administered [None]
  - Skin lesion [None]
  - Rash [None]

NARRATIVE: CASE EVENT DATE: 20150416
